FAERS Safety Report 4453452-5 (Version None)
Quarter: 2004Q3

REPORT INFORMATION
  Report Type: 
  Country: None (occurrence: None)
  Receive Date: 20040920
  Receipt Date: 20040908
  Transmission Date: 20050211
  Serious: Yes (Other)
  Sender: FDA-Public Use
  Company Number: US-JNJFOC-20040902670

PATIENT
  Sex: Male

DRUGS (2)
  1. DURAGESIC [Suspect]
     Indication: PAIN
     Route: 062
  2. PHENOBARBITAL TAB [Concomitant]
     Indication: CONVULSION PROPHYLAXIS

REACTIONS (5)
  - CONVULSION [None]
  - DERMATITIS CONTACT [None]
  - FEELING ABNORMAL [None]
  - NAUSEA [None]
  - OFF LABEL USE [None]
